FAERS Safety Report 18341827 (Version 1)
Quarter: 2020Q4

REPORT INFORMATION
  Report Type: Spontaneous
  Country: US (occurrence: US)
  Receive Date: 20201005
  Receipt Date: 20201005
  Transmission Date: 20210113
  Serious: No
  Sender: FDA-Public Use
  Company Number: US-ASTRAZENECA-2020SF25145

PATIENT
  Age: 58 Year
  Sex: Female

DRUGS (1)
  1. FARXIGA [Suspect]
     Active Substance: DAPAGLIFLOZIN PROPANEDIOL
     Indication: INSULIN-REQUIRING TYPE 2 DIABETES MELLITUS
     Dosage: 10.0MG UNKNOWN
     Route: 048
     Dates: end: 20200916

REACTIONS (1)
  - Fungal infection [Unknown]
